FAERS Safety Report 5678713-3 (Version None)
Quarter: 2008Q1

REPORT INFORMATION
  Report Type: 
  Country: None (occurrence: None)
  Receive Date: 20080324
  Receipt Date: 20080324
  Transmission Date: 20080703
  Serious: Yes (Life-Threatening, Disabling)
  Sender: FDA-Public Use
  Company Number: None

PATIENT
  Age: 60 Year
  Sex: Male
  Weight: 108.8633 kg

DRUGS (1)
  1. FELODIPINE [Suspect]
     Indication: BLOOD PRESSURE
     Dosage: ONE A DAY EACH DAY PO
     Route: 048
     Dates: start: 20080319, end: 20080320

REACTIONS (3)
  - ERYTHEMA [None]
  - HEART RATE INCREASED [None]
  - SWELLING [None]
